FAERS Safety Report 10631081 (Version 2)
Quarter: 2015Q1

REPORT INFORMATION
  Report Type: Spontaneous
  Country: US (occurrence: US)
  Receive Date: 20141205
  Receipt Date: 20150113
  Transmission Date: 20150720
  Serious: No
  Sender: FDA-Public Use
  Company Number: US-PFIZER INC-2014331403

PATIENT
  Age: 55 Year
  Sex: Female

DRUGS (1)
  1. ADVIL [Suspect]
     Active Substance: IBUPROFEN
     Indication: PAIN
     Dosage: 2 DF, 1X/DAY
     Dates: end: 201412

REACTIONS (2)
  - Pruritus [Recovered/Resolved]
  - Eye swelling [Recovered/Resolved]
